FAERS Safety Report 7082967-9 (Version None)
Quarter: 2010Q4

REPORT INFORMATION
  Report Type: 
  Country: None (occurrence: None)
  Receive Date: 20101104
  Receipt Date: 20100916
  Transmission Date: 20110411
  Serious: Yes (Hospitalization)
  Sender: FDA-Public Use
  Company Number: US-BAYER-200938604NA

PATIENT
  Age: 44 Year
  Sex: Female
  Weight: 69 kg

DRUGS (50)
  1. YAZ [Suspect]
     Indication: MENORRHAGIA
     Dates: start: 20070801, end: 20071001
  2. YASMIN [Suspect]
     Indication: PRODUCT USED FOR UNKNOWN INDICATION
  3. AYGESTIN [Concomitant]
     Indication: UTERINE HAEMORRHAGE
  4. AMOXICILLIN [Concomitant]
     Dates: start: 20071201
  5. LEVAQUIN [Concomitant]
     Dates: start: 20071001
  6. AZITHROMYCIN [Concomitant]
     Dates: start: 20070501, end: 20071001
  7. NITROFURANTOIN [Concomitant]
     Dates: start: 20080201
  8. NITROFURANTOIN [Concomitant]
     Dates: start: 20080401
  9. CIPROFLOXACIN [Concomitant]
     Dosage: VARIOUS INTERVALS
     Dates: start: 20000101
  10. CIPROFLOXACIN [Concomitant]
     Dates: start: 20070101
  11. NSAID'S [Concomitant]
     Dosage: VARIOUS INTERVALS
  12. SERTRALINE HYDROCHLORIDE [Concomitant]
     Indication: DEPRESSION
     Dates: start: 20061201
  13. ABILIFY [Concomitant]
     Indication: DEPRESSION
     Dates: start: 20061201
  14. ABILIFY [Concomitant]
     Dates: start: 20060201
  15. ABILIFY [Concomitant]
     Dates: start: 20071001
  16. WELLBUTRIN XL [Concomitant]
     Indication: DEPRESSION
     Dates: start: 20060801, end: 20061201
  17. WELLBUTRIN XL [Concomitant]
     Dates: start: 20070101, end: 20070501
  18. WELLBUTRIN XL [Concomitant]
     Dates: start: 20070801, end: 20071201
  19. WELLBUTRIN XL [Concomitant]
     Dates: start: 20080401
  20. MEDROL [Concomitant]
     Dosage: DOSE PACK #1
  21. IBUPROFEN [Concomitant]
     Dates: start: 20070901
  22. VICODIN [Concomitant]
  23. KETOROLAC TROMETHAMINE [Concomitant]
  24. TORADOL [Concomitant]
  25. ATIVAN [Concomitant]
  26. RESTORIL [Concomitant]
  27. AMBIEN [Concomitant]
  28. ACETAMINOPHEN [Concomitant]
  29. OXYCODONE HCL [Concomitant]
  30. BUPROPION [Concomitant]
  31. SERTRALINE HYDROCHLORIDE [Concomitant]
     Dates: start: 20060801, end: 20061201
  32. SERTRALINE HYDROCHLORIDE [Concomitant]
     Dates: start: 20070101, end: 20070401
  33. SERTRALINE HYDROCHLORIDE [Concomitant]
  34. SERTRALINE HYDROCHLORIDE [Concomitant]
     Dates: start: 20070701, end: 20070901
  35. SERTRALINE HYDROCHLORIDE [Concomitant]
     Dates: start: 20071101
  36. ACETAMINOPHEN AND HYDROCODONE BITARTRATE [Concomitant]
  37. ARIPIPRAZOLE [Concomitant]
  38. ZOLOFT [Concomitant]
  39. WELLBUTRIN [Concomitant]
  40. DARVOCET-N 100 [Concomitant]
  41. ZOFRAN [Concomitant]
     Indication: NAUSEA
  42. MOTRIN [Concomitant]
     Dates: start: 20070901
  43. BUDEPRION [Concomitant]
     Dates: start: 20060801, end: 20061201
  44. BUDEPRION [Concomitant]
     Dates: start: 20070101, end: 20070501
  45. BUDEPRION [Concomitant]
     Dates: start: 20070801, end: 20071201
  46. BUDEPRION [Concomitant]
     Dates: start: 20080401
  47. HYDROCODONE [Concomitant]
     Dates: start: 20070901
  48. HYDROCODONE [Concomitant]
     Dates: start: 20071001
  49. METHYLPREDNISOLONE [Concomitant]
     Dates: start: 20071001
  50. CITALOPRAM HYDROBROMIDE [Concomitant]
     Dates: start: 20070701

REACTIONS (12)
  - BACK PAIN [None]
  - CHEST PAIN [None]
  - DEEP VEIN THROMBOSIS [None]
  - DYSPNOEA [None]
  - HYPOAESTHESIA [None]
  - JOINT RANGE OF MOTION DECREASED [None]
  - MUSCULAR WEAKNESS [None]
  - OEDEMA PERIPHERAL [None]
  - PAIN IN EXTREMITY [None]
  - PARAESTHESIA [None]
  - PULMONARY EMBOLISM [None]
  - WEIGHT BEARING DIFFICULTY [None]
